FAERS Safety Report 15073786 (Version 1)
Quarter: 2018Q2

REPORT INFORMATION
  Report Type: Spontaneous
  Country: US (occurrence: US)
  Receive Date: 20180627
  Receipt Date: 20180627
  Transmission Date: 20180711
  Serious: No
  Sender: FDA-Public Use
  Company Number: US-ALLERGAN-1761355US

PATIENT
  Age: 68 Year
  Sex: Male

DRUGS (1)
  1. BLEPH-10 [Suspect]
     Active Substance: SULFACETAMIDE SODIUM
     Indication: EYE PROSTHESIS INSERTION
     Dosage: 1 GTT, EVERY 3-4 DAYS
     Route: 047
     Dates: start: 1959, end: 2015

REACTIONS (3)
  - Drug dose omission [Unknown]
  - Off label use [Unknown]
  - Intentional product misuse [Unknown]
